FAERS Safety Report 5188100-2 (Version None)
Quarter: 2006Q4

REPORT INFORMATION
  Report Type: 
  Country: None (occurrence: None)
  Receive Date: 20061221
  Receipt Date: 20060516
  Transmission Date: 20070319
  Serious: Yes (Death, Hospitalization)
  Sender: FDA-Public Use
  Company Number: GB-ELI_LILLY_AND_COMPANY-GB200605003173

PATIENT
  Age: 49 Year
  Sex: Female
  Weight: 54.5 kg

DRUGS (14)
  1. GEMCITABINE HCL [Suspect]
     Indication: NON-SMALL CELL LUNG CANCER
     Dosage: 1250 MG/M2, UNK
     Dates: start: 20060329
  2. CISPLATIN [Suspect]
     Indication: NON-SMALL CELL LUNG CANCER
     Dosage: 50 MG/M2, UNK
     Dates: start: 20060329
  3. DICLOFENAC SODIUM [Concomitant]
     Indication: MUSCULOSKELETAL CHEST PAIN
     Dosage: 50 MG, 3/D
     Route: 048
     Dates: start: 20060301
  4. ACETAMINOPHEN W/ CODEINE [Concomitant]
     Indication: MUSCULOSKELETAL CHEST PAIN
     Dosage: 2 D/F, 4/D
     Route: 048
     Dates: start: 20060301
  5. LANSOPRAZOLE [Concomitant]
     Indication: PROPHYLAXIS
     Dosage: 30 MG, DAILY (1/D)
     Route: 048
     Dates: start: 20060301
  6. CLARITHROMYCIN [Concomitant]
     Indication: PRODUCTIVE COUGH
     Dosage: 250 MG, 2/D
     Route: 048
     Dates: start: 20060327, end: 20060403
  7. FOLIC ACID [Concomitant]
     Dosage: 400 UG, DAILY (1/D)
     Route: 048
  8. DEXAMETHASONE [Concomitant]
     Indication: PROPHYLAXIS
     Dosage: 8 MG, DAILY (1/D)
     Route: 042
     Dates: start: 20060329, end: 20060329
  9. DEXAMETHASONE [Concomitant]
     Dosage: 4 MG, 2/D
     Route: 048
     Dates: start: 20060330, end: 20060403
  10. SENNA [Concomitant]
     Indication: CONSTIPATION
     Dosage: UNK, AS NEEDED
  11. GRANISETRON [Concomitant]
     Indication: PROPHYLAXIS
     Dosage: 1 MG, DAILY (1/D)
     Route: 042
     Dates: start: 20060329, end: 20060329
  12. GRANISETRON [Concomitant]
     Dosage: 1 MG, DAILY (1/D)
     Route: 048
     Dates: start: 20060330, end: 20060403
  13. TRANEXAMIC ACID [Concomitant]
     Dosage: 500 MG, 4/D
     Route: 048
  14. VENTOLIN [Concomitant]
     Dosage: 2 D/F, 4/D
     Route: 055

REACTIONS (10)
  - BLOOD POTASSIUM DECREASED [None]
  - BLOOD SODIUM DECREASED [None]
  - CHILLS [None]
  - HAEMOPTYSIS [None]
  - ORAL CANDIDIASIS [None]
  - PLATELET COUNT DECREASED [None]
  - PRODUCTIVE COUGH [None]
  - PURULENCE [None]
  - SPUTUM DISCOLOURED [None]
  - VOMITING [None]
